FAERS Safety Report 11696492 (Version 2)
Quarter: 2015Q4

REPORT INFORMATION
  Report Type: Spontaneous
  Country: CH (occurrence: CH)
  Receive Date: 20151104
  Receipt Date: 20151126
  Transmission Date: 20160304
  Serious: Yes (Hospitalization)
  Sender: FDA-Public Use
  Company Number: CH-AMGEN-CHESP2015114224

PATIENT
  Age: 40 Year
  Sex: Female
  Weight: 65 kg

DRUGS (11)
  1. ETOPOPHOS [Concomitant]
     Active Substance: ETOPOSIDE PHOSPHATE
     Indication: HODGKIN^S DISEASE STAGE II
     Dosage: UNK
     Route: 042
     Dates: start: 20151020
  2. NATULAN [Concomitant]
     Active Substance: PROCARBAZINE HYDROCHLORIDE
     Indication: HODGKIN^S DISEASE STAGE II
     Dosage: 150 MG, FOR 7 DAYS
     Route: 048
     Dates: start: 20151020
  3. ADRIBLASTIN [Concomitant]
     Active Substance: DOXORUBICIN HYDROCHLORIDE
     Indication: HODGKIN^S DISEASE STAGE II
     Dosage: UNK
     Route: 042
     Dates: start: 20151020
  4. NOPIL [Suspect]
     Active Substance: SULFAMETHOXAZOLE\TRIMETHOPRIM
     Indication: PRODUCT USED FOR UNKNOWN INDICATION
     Dosage: UNK
     Route: 048
     Dates: start: 20151021, end: 20151023
  5. BLEOMYCIN [Concomitant]
     Active Substance: BLEOMYCIN SULFATE
     Indication: HODGKIN^S DISEASE STAGE II
     Dosage: UNK
     Dates: start: 20151020
  6. ENDOXAN                            /00021101/ [Concomitant]
     Active Substance: CYCLOPHOSPHAMIDE
     Indication: HODGKIN^S DISEASE STAGE II
     Dosage: UNK
     Route: 042
     Dates: start: 20151020
  7. ONCOVIN [Concomitant]
     Active Substance: VINCRISTINE SULFATE
     Indication: HODGKIN^S DISEASE STAGE II
     Dosage: UNK
     Dates: start: 20151020
  8. NEULASTA [Suspect]
     Active Substance: PEGFILGRASTIM
     Indication: NEUTROPENIA
     Dosage: UNK
     Route: 058
     Dates: start: 20151023
  9. SPIRICORT [Concomitant]
     Active Substance: PREDNISOLONE
     Indication: PRURITUS
  10. SPIRICORT [Concomitant]
     Active Substance: PREDNISOLONE
     Indication: HODGKIN^S DISEASE STAGE II
     Dosage: 70 MG, FOR 14 DAYS
     Route: 048
     Dates: start: 20151020
  11. SPIRICORT [Concomitant]
     Active Substance: PREDNISOLONE
     Indication: RASH
     Dosage: 20 MG, UNK
     Dates: start: 20151023

REACTIONS (8)
  - Muscle tightness [Recovering/Resolving]
  - Hypersensitivity [Unknown]
  - Lip swelling [Recovering/Resolving]
  - Rash [Recovering/Resolving]
  - Swollen tongue [Unknown]
  - Pruritus [Recovering/Resolving]
  - Dysphonia [Recovering/Resolving]
  - Pharyngeal oedema [Unknown]

NARRATIVE: CASE EVENT DATE: 20151023
